FAERS Safety Report 5386494-6 (Version None)
Quarter: 2007Q3

REPORT INFORMATION
  Report Type: 
  Country: None (occurrence: None)
  Receive Date: 20070710
  Receipt Date: 20070703
  Transmission Date: 20080115
  Serious: Yes (Death, Hospitalization)
  Sender: FDA-Public Use
  Company Number: 163-21880-07070167

PATIENT
  Age: 73 Year
  Sex: Male
  Weight: 79 kg

DRUGS (3)
  1. REVLIMID [Suspect]
     Indication: ACUTE MYELOID LEUKAEMIA
     Dosage: 50 MG, DAILY X14 DAYS; ORAL
     Route: 048
     Dates: start: 20070619, end: 20070702
  2. HYDROXYUREA (HYDROXYCARBAMIDE) (PILL) [Concomitant]
  3. ALLOPURINOL (ALLOPURINIL) [Concomitant]

REACTIONS (4)
  - HEADACHE [None]
  - MALAISE [None]
  - NAUSEA [None]
  - VOMITING [None]
